FAERS Safety Report 6708020-9 (Version None)
Quarter: 2010Q2

REPORT INFORMATION
  Report Type: 
  Country: None (occurrence: None)
  Receive Date: 20100503
  Receipt Date: 20090408
  Transmission Date: 20101027
  Serious: Yes (Other)
  Sender: FDA-Public Use
  Company Number: US-BAYER-200910142NA

PATIENT
  Age: 54 Year
  Sex: Female

DRUGS (11)
  1. BETASERON [Suspect]
     Indication: RELAPSING-REMITTING MULTIPLE SCLEROSIS
     Dosage: BETAJECT
     Route: 058
     Dates: start: 20081211
  2. BETASERON [Suspect]
     Route: 058
     Dates: start: 20010501, end: 20030402
  3. BETASERON [Suspect]
     Route: 058
     Dates: start: 19940101, end: 20010501
  4. BETASERON [Suspect]
     Dosage: BETAJECT
     Route: 058
  5. BETASERON [Suspect]
     Dosage: BETAJECT
     Route: 058
  6. BETASERON [Suspect]
     Dosage: BETAJECT
     Route: 058
  7. BETASERON [Suspect]
     Dosage: BETAJECT
     Route: 058
  8. BETASERON [Suspect]
     Route: 058
     Dates: end: 20090402
  9. AVONEX [Concomitant]
     Indication: DRUG USE FOR UNKNOWN INDICATION
     Route: 065
  10. COPAXONE [Concomitant]
     Indication: DRUG USE FOR UNKNOWN INDICATION
     Route: 065
  11. TYLENOL-500 [Concomitant]
     Indication: DRUG USE FOR UNKNOWN INDICATION
     Route: 065

REACTIONS (19)
  - ASTHENIA [None]
  - AUTOIMMUNE DISORDER [None]
  - AUTOIMMUNE THYROIDITIS [None]
  - CHILLS [None]
  - DRUG SPECIFIC ANTIBODY PRESENT [None]
  - DRY MOUTH [None]
  - FATIGUE [None]
  - FEELING ABNORMAL [None]
  - HEADACHE [None]
  - INFLUENZA LIKE ILLNESS [None]
  - INSOMNIA [None]
  - LIP DRY [None]
  - MULTIPLE SCLEROSIS [None]
  - NAUSEA [None]
  - OESOPHAGEAL DISCOMFORT [None]
  - PAIN [None]
  - PIGMENTATION DISORDER [None]
  - THIRST [None]
  - URINARY TRACT INFECTION [None]
